FAERS Safety Report 6538034-3 (Version None)
Quarter: 2010Q1

REPORT INFORMATION
  Report Type: 
  Country: None (occurrence: None)
  Receive Date: 20100114
  Receipt Date: 20100106
  Transmission Date: 20100710
  Serious: Yes (Hospitalization)
  Sender: FDA-Public Use
  Company Number: JP-B.I. PHARMACEUTICALS,INC./RIDGEFIELD-2010-BP-00199NB

PATIENT
  Age: 73 Year
  Sex: Female

DRUGS (2)
  1. BI-SIFROL TABLETS [Suspect]
     Indication: PARKINSON'S DISEASE
     Dosage: 2 MG
     Route: 048
     Dates: start: 20070131, end: 20090723
  2. CARBIDOPA AND LEVODOPA [Concomitant]
     Indication: PARKINSON'S DISEASE
     Dosage: 150 MG
     Route: 048

REACTIONS (1)
  - TORTICOLLIS [None]
